FAERS Safety Report 19360479 (Version 1)
Quarter: 2021Q2

REPORT INFORMATION
  Report Type: Report from Study
  Country: None (occurrence: US)
  Receive Date: 20210602
  Receipt Date: 20210602
  Transmission Date: 20210717
  Serious: No
  Sender: FDA-Public Use
  Company Number: US-MDD US OPERATIONS-USW202006-001324

PATIENT
  Age: 78 Year
  Sex: Male

DRUGS (6)
  1. CARBO/LEVODOPA [Concomitant]
     Dosage: 25/100MG
  2. APOKYN [Suspect]
     Active Substance: APOMORPHINE HYDROCHLORIDE
     Route: 058
     Dates: start: 20200625
  3. APOKYN [Suspect]
     Active Substance: APOMORPHINE HYDROCHLORIDE
     Indication: PARKINSON^S DISEASE
     Route: 058
     Dates: start: 20200625
  4. APOKYN [Suspect]
     Active Substance: APOMORPHINE HYDROCHLORIDE
     Route: 058
     Dates: start: 20200625, end: 20200904
  5. APOKYN [Suspect]
     Active Substance: APOMORPHINE HYDROCHLORIDE
     Route: 058
     Dates: start: 20200625, end: 20200915
  6. ROPINIROLE. [Concomitant]
     Active Substance: ROPINIROLE
     Indication: PARKINSON^S DISEASE
     Dosage: NOT PROVIDED

REACTIONS (6)
  - Feeling hot [Not Recovered/Not Resolved]
  - Nausea [Recovered/Resolved]
  - Rash [Not Recovered/Not Resolved]
  - Erythema [Not Recovered/Not Resolved]
  - Somnolence [Recovered/Resolved]
  - Nausea [Recovered/Resolved]

NARRATIVE: CASE EVENT DATE: 20200625
